FAERS Safety Report 25199564 (Version 3)
Quarter: 2025Q4

REPORT INFORMATION
  Report Type: Spontaneous
  Country: US (occurrence: US)
  Receive Date: 20250415
  Receipt Date: 20251219
  Transmission Date: 20260118
  Serious: No
  Sender: VERTEX
  Company Number: US-VERTEX PHARMACEUTICALS-2025-005545

PATIENT
  Age: 43 Year
  Sex: Female

DRUGS (3)
  1. ALYFTREK [Suspect]
     Active Substance: DEUTIVACAFTOR\TEZACAFTOR\VANZACAFTOR
     Indication: Cystic fibrosis
     Dosage: 02 TABLETS (10MG VANZACAFTOR/50MG TEZACAFTOR/125MG DEUTIVACAFTOR), QD
     Route: 061
     Dates: start: 20250320, end: 20250403
  2. ALYFTREK [Suspect]
     Active Substance: DEUTIVACAFTOR\TEZACAFTOR\VANZACAFTOR
     Dosage: 01 TABLET (10MG VANZACAFTOR/50MG TEZACAFTOR/125MG DEUTIVACAFTOR), QD
     Route: 061
     Dates: start: 20250408, end: 20250421
  3. ALYFTREK [Suspect]
     Active Substance: DEUTIVACAFTOR\TEZACAFTOR\VANZACAFTOR
     Dosage: 02 TABLET (10MG VANZACAFTOR/50MG TEZACAFTOR/125MG DEUTIVACAFTOR), QD
     Route: 061
     Dates: start: 20250422

REACTIONS (2)
  - Rash erythematous [Recovered/Resolved]
  - Rash pruritic [Recovered/Resolved]

NARRATIVE: CASE EVENT DATE: 20250403
